FAERS Safety Report 10802602 (Version 1)
Quarter: 2015Q1

REPORT INFORMATION
  Report Type: Spontaneous
  Country: US (occurrence: US)
  Receive Date: 20150217
  Receipt Date: 20150217
  Transmission Date: 20150721
  Serious: No
  Sender: FDA-Public Use
  Company Number: US-BRACCO-010516

PATIENT

DRUGS (2)
  1. ANESTHETICS [Concomitant]
     Active Substance: UNSPECIFIED INGREDIENT
     Indication: PAIN MANAGEMENT
     Dates: start: 20140110, end: 20140110
  2. ISOVUE 300 [Suspect]
     Active Substance: IOPAMIDOL
     Indication: COMPUTERISED TOMOGRAM
     Dates: start: 20140110, end: 20140110

REACTIONS (2)
  - Poor quality drug administered [Unknown]
  - No adverse event [Unknown]

NARRATIVE: CASE EVENT DATE: 20140110
